FAERS Safety Report 6061276-0 (Version None)
Quarter: 2009Q1

REPORT INFORMATION
  Report Type: 
  Country: None (occurrence: None)
  Receive Date: 20090202
  Receipt Date: 20090126
  Transmission Date: 20090719
  Serious: Yes (Hospitalization)
  Sender: FDA-Public Use
  Company Number: US-BAYER-200910241BCC

PATIENT
  Age: 56 Year
  Sex: Female
  Weight: 50 kg

DRUGS (10)
  1. ASPIRIN [Suspect]
     Indication: STENT PLACEMENT
     Dosage: TOTAL DAILY DOSE: 325 MG  UNIT DOSE: 325 MG
     Route: 048
     Dates: start: 20080801
  2. PLAVIX [Suspect]
     Indication: STENT PLACEMENT
     Dosage: TOTAL DAILY DOSE: 75 MG  UNIT DOSE: 75 MG
     Route: 048
     Dates: start: 20080601, end: 20090104
  3. PLAVIX [Suspect]
     Dosage: UNIT DOSE: 75 MG
     Route: 048
     Dates: start: 20090104
  4. LIPITOR [Concomitant]
  5. TRICOR [Concomitant]
  6. LASIX [Concomitant]
  7. LEVEMIR [Concomitant]
  8. CELEXA [Concomitant]
  9. FERROUS SULFATE TAB [Concomitant]
  10. XANAX [Concomitant]

REACTIONS (1)
  - MYOCARDIAL INFARCTION [None]
